FAERS Safety Report 14738175 (Version 1)
Quarter: 2018Q2

REPORT INFORMATION
  Report Type: Spontaneous
  Country: CO (occurrence: CO)
  Receive Date: 20180409
  Receipt Date: 20180409
  Transmission Date: 20180711
  Serious: Yes (Other)
  Sender: FDA-Public Use
  Company Number: CO-JNJFOC-20180402260

PATIENT
  Age: 6 Year
  Sex: Male

DRUGS (4)
  1. RISPERDAL CONSTA [Suspect]
     Active Substance: RISPERIDONE
     Indication: AUTISM SPECTRUM DISORDER
     Route: 065
  2. RISPERIDONE. [Suspect]
     Active Substance: RISPERIDONE
     Indication: AUTISM SPECTRUM DISORDER
     Route: 065
  3. RISPERIDONE. [Suspect]
     Active Substance: RISPERIDONE
     Indication: PSYCHOMOTOR RETARDATION
     Route: 065
  4. RISPERDAL CONSTA [Suspect]
     Active Substance: RISPERIDONE
     Indication: PSYCHOMOTOR RETARDATION
     Route: 065

REACTIONS (5)
  - Product use in unapproved indication [Unknown]
  - Intentional self-injury [Unknown]
  - Aggression [Unknown]
  - Insomnia [Unknown]
  - Off label use [Unknown]
